FAERS Safety Report 15531511 (Version 1)
Quarter: 2018Q4

REPORT INFORMATION
  Report Type: Spontaneous
  Country: US (occurrence: US)
  Receive Date: 20181019
  Receipt Date: 20181019
  Transmission Date: 20190205
  Serious: No
  Sender: FDA-Public Use
  Company Number: US-ASTRAZENECA-2018SF22899

PATIENT
  Age: 73 Year
  Sex: Female

DRUGS (1)
  1. FASLODEX [Suspect]
     Active Substance: FULVESTRANT
     Dosage: DOUBLE SHOT 250 MG
     Route: 030

REACTIONS (4)
  - Memory impairment [Unknown]
  - Speech disorder [Unknown]
  - Musculoskeletal chest pain [Not Recovered/Not Resolved]
  - Confusional state [Unknown]

NARRATIVE: CASE EVENT DATE: 2018
